FAERS Safety Report 13193641 (Version 1)
Quarter: 2017Q1

REPORT INFORMATION
  Report Type: Report from Study
  Country: FR (occurrence: FR)
  Receive Date: 20170207
  Receipt Date: 20170207
  Transmission Date: 20170428
  Serious: Yes (Hospitalization, Other)
  Sender: FDA-Public Use
  Company Number: FR-EXELIXIS-CABO-17008179

PATIENT
  Age: 72 Year
  Sex: Male

DRUGS (15)
  1. KEPPRA [Concomitant]
     Active Substance: LEVETIRACETAM
     Indication: SEIZURE
  2. CABOMETYX [Suspect]
     Active Substance: CABOZANTINIB S-MALATE
     Dosage: 60 MG, QD
     Route: 048
     Dates: start: 20161126, end: 20161209
  3. OXYBNORMORO [Concomitant]
  4. STILNOX [Concomitant]
     Active Substance: ZOLPIDEM TARTRATE
  5. KARDEGIC [Concomitant]
     Active Substance: ASPIRIN LYSINE
  6. LOVENOX [Concomitant]
     Active Substance: ENOXAPARIN SODIUM
     Indication: THROMBOSIS PROPHYLAXIS
  7. ROCEFIN [Concomitant]
     Active Substance: CEFTRIAXONE SODIUM
     Indication: INFECTION
  8. LOXEN [Concomitant]
     Active Substance: NICARDIPINE HYDROCHLORIDE
  9. OXYCODONE [Concomitant]
     Active Substance: OXYCODONE
  10. DOLIPRANE [Concomitant]
     Active Substance: ACETAMINOPHEN
  11. CABOMETYX [Suspect]
     Active Substance: CABOZANTINIB S-MALATE
     Indication: METASTATIC RENAL CELL CARCINOMA
     Dosage: 60 MG, QD
     Route: 048
     Dates: start: 20161026, end: 20161125
  12. CABOMETYX [Suspect]
     Active Substance: CABOZANTINIB S-MALATE
     Dosage: 60 MG, QD
     Route: 048
     Dates: start: 20161212, end: 20161221
  13. CABOMETYX [Suspect]
     Active Substance: CABOZANTINIB S-MALATE
     Dosage: 60 MG, QD
     Route: 048
     Dates: start: 20161229, end: 20170101
  14. LARGACTIL [Concomitant]
     Active Substance: CHLORPROMAZINE
  15. SERESTA [Concomitant]
     Active Substance: OXAZEPAM

REACTIONS (4)
  - Neutropenia [Recovered/Resolved]
  - Physiotherapy [Unknown]
  - Pyrexia [Unknown]
  - Urinary tract infection [Unknown]

NARRATIVE: CASE EVENT DATE: 20161117
